FAERS Safety Report 14430733 (Version 2)
Quarter: 2018Q1

REPORT INFORMATION
  Report Type: Report from Study
  Country: US (occurrence: US)
  Receive Date: 20180124
  Receipt Date: 20180220
  Transmission Date: 20180509
  Serious: No
  Sender: FDA-Public Use
  Company Number: US-ROCHE-2054883

PATIENT
  Sex: Female
  Weight: 57.2 kg

DRUGS (1)
  1. ESBRIET [Suspect]
     Active Substance: PIRFENIDONE
     Indication: IDIOPATHIC PULMONARY FIBROSIS
     Dosage: 3 TABLETS, 3 TIMES PER DAY
     Route: 065
     Dates: start: 2017, end: 201712

REACTIONS (5)
  - Weight decreased [Recovering/Resolving]
  - Eye disorder [Recovered/Resolved]
  - Visual acuity reduced [Recovered/Resolved]
  - Asthenia [Recovered/Resolved]
  - Dyskinesia [Recovered/Resolved]

NARRATIVE: CASE EVENT DATE: 2017
